FAERS Safety Report 14032586 (Version 1)
Quarter: 2017Q4

REPORT INFORMATION
  Report Type: Spontaneous
  Country: US (occurrence: US)
  Receive Date: 20171002
  Receipt Date: 20171002
  Transmission Date: 20180321
  Serious: No
  Sender: FDA-Public Use
  Company Number: US-PFIZER INC-2017421855

PATIENT
  Age: 58 Year
  Sex: Male

DRUGS (1)
  1. RAPAMUNE [Suspect]
     Active Substance: SIROLIMUS
     Indication: HEART TRANSPLANT
     Dosage: 1 MG, 1X/DAY (0.5MG TABLETS FOR TOTAL DOSE OF 1MG
     Route: 048
     Dates: start: 201607

REACTIONS (2)
  - Product use in unapproved indication [Unknown]
  - Immunosuppressant drug level increased [Unknown]
